FAERS Safety Report 19561082 (Version 4)
Quarter: 2024Q3

REPORT INFORMATION
  Report Type: Spontaneous
  Country: ES (occurrence: ES)
  Receive Date: 20210716
  Receipt Date: 20240702
  Transmission Date: 20241017
  Serious: Yes (Hospitalization)
  Sender: NOVO NORDISK
  Company Number: ES-NOVOPROD-828841

PATIENT
  Age: 55 Year
  Sex: Male
  Weight: 86 kg

DRUGS (2)
  1. SAXENDA [Suspect]
     Active Substance: LIRAGLUTIDE
     Indication: Product used for unknown indication
     Dosage: FIRST WEEK: 0.6 MG
     Route: 065
     Dates: start: 2021
  2. SAXENDA [Suspect]
     Active Substance: LIRAGLUTIDE
     Dosage: SECOND WEEK 1.2 MG
     Route: 065

REACTIONS (3)
  - Colitis [Unknown]
  - Product leakage [Unknown]
  - Needle issue [Unknown]

NARRATIVE: CASE EVENT DATE: 20210101
